FAERS Safety Report 6543940-X (Version None)
Quarter: 2010Q1

REPORT INFORMATION
  Report Type: 
  Country: None (occurrence: None)
  Receive Date: 20100120
  Receipt Date: 20100111
  Transmission Date: 20100710
  Serious: Yes (Hospitalization)
  Sender: FDA-Public Use
  Company Number: BR-ELI_LILLY_AND_COMPANY-BR201001001802

PATIENT
  Sex: Male
  Weight: 78 kg

DRUGS (3)
  1. HUMALOG MIX 75/25 [Suspect]
     Indication: TYPE 2 DIABETES MELLITUS
     Dosage: 66 IU, DAILY (1/D)
     Route: 058
     Dates: start: 20090101
  2. PURAN T4 [Concomitant]
     Indication: HYPOTHYROIDISM
     Dosage: 50 MG, DAILY (1/D)
     Route: 048
     Dates: start: 20080101
  3. MELHORAL [Concomitant]
     Dosage: UNK, DAILY (1/D)
     Route: 048
     Dates: start: 20050101

REACTIONS (2)
  - HYPERGLYCAEMIA [None]
  - MALAISE [None]
